FAERS Safety Report 5094033-2 (Version None)
Quarter: 2006Q3

REPORT INFORMATION
  Report Type: 
  Country: None (occurrence: None)
  Receive Date: 20060728
  Receipt Date: 20060525
  Transmission Date: 20061208
  Serious: No
  Sender: FDA-Public Use
  Company Number: 253619

PATIENT
  Age: 47 Year
  Sex: Female
  Weight: 86.2 kg

DRUGS (5)
  1. LEVEMIR [Suspect]
     Indication: INSULIN-REQUIRING TYPE II DIABETES MELLITUS
     Dosage: 40 IU, QD, HS, SUBCUTANEOUS
     Route: 058
     Dates: start: 20060315
  2. NORVASC [Concomitant]
  3. TRICOR [Concomitant]
  4. METFORMIN HCL [Concomitant]
  5. NOVOFINE 30 (NEEDLE) [Concomitant]

REACTIONS (1)
  - WHITE BLOOD CELL COUNT INCREASED [None]
